FAERS Safety Report 7461122-4 (Version None)
Quarter: 2011Q2

REPORT INFORMATION
  Report Type: 
  Country: None (occurrence: None)
  Receive Date: 20110505
  Receipt Date: 20090901
  Transmission Date: 20111010
  Serious: Yes (Other)
  Sender: FDA-Public Use
  Company Number: DE-GENENTECH-318081

PATIENT
  Age: 82 Year
  Sex: Female

DRUGS (3)
  1. UNKNOWN MEDICATION [Concomitant]
     Indication: PRODUCT USED FOR UNKNOWN INDICATION
  2. LUCENTIS [Suspect]
     Indication: AGE-RELATED MACULAR DEGENERATION
     Dosage: UNK
     Route: 031
     Dates: start: 20090630
  3. CHEMOTHERAPY (UNK INGREDIENTS) [Concomitant]
     Indication: PRODUCT USED FOR UNKNOWN INDICATION

REACTIONS (12)
  - EYE PRURITUS [None]
  - STRESS [None]
  - WEIGHT DECREASED [None]
  - DYSPNOEA [None]
  - LUNG NEOPLASM MALIGNANT [None]
  - ODYNOPHAGIA [None]
  - MALAISE [None]
  - VISUAL ACUITY REDUCED [None]
  - DIZZINESS [None]
  - OESOPHAGEAL CARCINOMA [None]
  - GASTRIC DISORDER [None]
  - NEOPLASM MALIGNANT [None]
